FAERS Safety Report 8546908 (Version 3)
Quarter: 2013Q1

REPORT INFORMATION
  Report Type: Report from Study
  Country: US (occurrence: US)
  Receive Date: 20120504
  Receipt Date: 20130225
  Transmission Date: 20140127
  Serious: Yes (Other)
  Sender: FDA-Public Use
  Company Number: US-NOVOPROD-350397

PATIENT
  Age: 6 Year
  Sex: Female
  Weight: 8 kg

DRUGS (1)
  1. NORDITROPIN [Suspect]
     Indication: HYPOPITUITARISM
     Dosage: 0.45 MG, QD
     Route: 058
     Dates: start: 20081020, end: 20110505

REACTIONS (1)
  - Retinoblastoma [Recovered/Resolved]
